FAERS Safety Report 7395707-0 (Version None)
Quarter: 2011Q2

REPORT INFORMATION
  Report Type: 
  Country: None (occurrence: None)
  Receive Date: 20110405
  Receipt Date: 20110104
  Transmission Date: 20111010
  Serious: No
  Sender: FDA-Public Use
  Company Number: US-BAYER-2011-027946

PATIENT
  Sex: Female

DRUGS (2)
  1. EVISTA [Concomitant]
  2. ALEVE (CAPLET) [Suspect]
     Indication: BACK PAIN
     Dosage: 1 DF, UNK
     Route: 048
     Dates: start: 20101201

REACTIONS (4)
  - URTICARIA [None]
  - OROPHARYNGEAL BLISTERING [None]
  - HYPERSENSITIVITY [None]
  - OEDEMA MOUTH [None]
